FAERS Safety Report 23171534 (Version 2)
Quarter: 2024Q1

REPORT INFORMATION
  Report Type: Spontaneous
  Country: CZ (occurrence: CZ)
  Receive Date: 20231110
  Receipt Date: 20240131
  Transmission Date: 20240409
  Serious: Yes (Other)
  Sender: FDA-Public Use
  Company Number: CZ-TEVA-2023-CZ-2942826

PATIENT
  Age: 18 Year
  Sex: Female

DRUGS (3)
  1. TOPIRAMATE [Suspect]
     Active Substance: TOPIRAMATE
     Indication: Migraine without aura
     Route: 065
  2. SUMATRIPTAN [Suspect]
     Active Substance: SUMATRIPTAN
     Indication: Migraine without aura
     Dosage: DOSAGE TEXT: ACUTE ATTACK MEDICATION
     Route: 065
  3. AIMOVIG [Suspect]
     Active Substance: ERENUMAB-AOOE
     Indication: Migraine without aura
     Route: 065

REACTIONS (3)
  - Cognitive disorder [Recovered/Resolved]
  - Medication overuse headache [Recovered/Resolved]
  - Drug ineffective [Unknown]
